FAERS Safety Report 17834420 (Version 1)
Quarter: 2020Q2

REPORT INFORMATION
  Report Type: Spontaneous
  Country: US (occurrence: US)
  Receive Date: 20200528
  Receipt Date: 20200528
  Transmission Date: 20200714
  Serious: Yes (Death)
  Sender: FDA-Public Use
  Company Number: US-HORIZON-PRO-0117-2020

PATIENT
  Age: 29 Year
  Sex: Male

DRUGS (23)
  1. GENTAMICIN SULFATE. [Concomitant]
     Active Substance: GENTAMICIN SULFATE
     Dosage: 0.1% CREAM
  2. METOPROLOL SUCCINATE. [Concomitant]
     Active Substance: METOPROLOL SUCCINATE
  3. FLONASE ALLERGY RELIEF [Concomitant]
     Active Substance: FLUTICASONE PROPIONATE
  4. CIPRO [Concomitant]
     Active Substance: CIPROFLOXACIN HYDROCHLORIDE
  5. NIFEDIPINE. [Concomitant]
     Active Substance: NIFEDIPINE
     Dosage: 90MG TABLET ER 24
  6. VITAMIN D2 [Concomitant]
     Active Substance: ERGOCALCIFEROL
  7. MIRCERA [Concomitant]
     Active Substance: METHOXY POLYETHYLENE GLYCOL-EPOETIN BETA
     Dosage: 200MCG/0.3 SYRINGE
  8. LOPERAMIDE [Concomitant]
     Active Substance: LOPERAMIDE
  9. TELMISARTAN-AMLODIPINE [Concomitant]
  10. RENVELA [Concomitant]
     Active Substance: SEVELAMER CARBONATE
  11. PROCYSBI [Suspect]
     Active Substance: CYSTEAMINE BITARTRATE
     Indication: CYSTINOSIS
     Dosage: 22X75MG CAPSULES EVERY 12 HOURS
     Dates: start: 2018
  12. ROCALTROL [Concomitant]
     Active Substance: CALCITRIOL
  13. KEPPRA [Concomitant]
     Active Substance: LEVETIRACETAM
  14. ZYRTEX [Concomitant]
  15. GABAPENTIN. [Concomitant]
     Active Substance: GABAPENTIN
  16. TYLENOL EXTRA STRENGTH [Concomitant]
     Active Substance: ACETAMINOPHEN
  17. ZOFRAN [Concomitant]
     Active Substance: ONDANSETRON HYDROCHLORIDE
  18. LEVOTHYROXINE SODIUM. [Concomitant]
     Active Substance: LEVOTHYROXINE SODIUM
  19. MINOXIDIL. [Concomitant]
     Active Substance: MINOXIDIL
  20. MECLIZINE HCL [Concomitant]
     Active Substance: MECLIZINE HYDROCHLORIDE
  21. PERCOCET [Concomitant]
     Active Substance: ACETAMINOPHEN\OXYCODONE HYDROCHLORIDE
  22. MUPIROCIN. [Concomitant]
     Active Substance: MUPIROCIN
     Dosage: 2% CREAM
  23. HYDRALAZINE HCL [Concomitant]
     Active Substance: HYDRALAZINE HYDROCHLORIDE

REACTIONS (1)
  - Death [Fatal]
